FAERS Safety Report 6218110-5 (Version None)
Quarter: 2009Q2

REPORT INFORMATION
  Report Type: 
  Country: None (occurrence: None)
  Receive Date: 20090608
  Receipt Date: 20090529
  Transmission Date: 20091009
  Serious: Yes (Other)
  Sender: FDA-Public Use
  Company Number: PHHY2009AT02341

PATIENT
  Sex: Male

DRUGS (5)
  1. ZOMETA [Suspect]
     Indication: METASTASES TO BONE
     Dosage: 4 MG EVERY 4 WEEKS
     Dates: start: 20080929, end: 20081120
  2. ZOMETA [Suspect]
     Indication: PROSTATE CANCER
  3. TRENANTONE [Concomitant]
     Indication: PROSTATE CANCER
     Dosage: EVERY 3 MONTH
  4. ANDROCUR [Concomitant]
     Indication: PROSTATE CANCER
  5. TAXOTERE [Concomitant]
     Indication: NEOPLASM MALIGNANT
     Dosage: 75 MG/M2 EVERY 3 WEEKS
     Dates: start: 20081126

REACTIONS (10)
  - GINGIVAL INFECTION [None]
  - GINGIVAL OPERATION [None]
  - JAW DISORDER [None]
  - OSTEOMYELITIS [None]
  - OSTEONECROSIS [None]
  - PAIN [None]
  - STAPHYLOCOCCAL INFECTION [None]
  - SWELLING [None]
  - TOOTH DISORDER [None]
  - WOUND COMPLICATION [None]
